FAERS Safety Report 8282189-X (Version None)
Quarter: 2012Q2

REPORT INFORMATION
  Report Type: 
  Country: None (occurrence: None)
  Receive Date: 20120413
  Receipt Date: 20120402
  Transmission Date: 20120825
  Serious: Yes (Hospitalization)
  Sender: FDA-Public Use
  Company Number: US-BRISTOL-MYERS SQUIBB COMPANY-16494296

PATIENT
  Sex: Male
  Weight: 2 kg

DRUGS (5)
  1. PHENYTOIN [Interacting]
     Dosage: ALSO TAKEN 5MG/KG
  2. MILRINONE [Suspect]
     Dosage: 1 DOSAGE FORM = 0.2 UG/KG/MIN
  3. LIDOCAINE [Interacting]
     Dosage: 10MCG/KG INCREASE TO 40MCG/KG
  4. AMIODARONE HCL [Interacting]
     Dosage: 11 DOSE OF 3MG/KG
  5. ESMOLOL HCL [Suspect]
     Dosage: 1 DOSAGE FORM = 66UG/KG/MIN

REACTIONS (3)
  - NEUROTOXICITY [None]
  - VENTRICULAR ARRHYTHMIA [None]
  - DRUG INTERACTION [None]
